FAERS Safety Report 6120938-7 (Version None)
Quarter: 2009Q1

REPORT INFORMATION
  Report Type: 
  Country: None (occurrence: None)
  Receive Date: 20090312
  Receipt Date: 20090312
  Transmission Date: 20090719
  Serious: No
  Sender: FDA-Public Use
  Company Number: None

PATIENT
  Age: 7 Year
  Weight: 29.4838 kg

DRUGS (1)
  1. DIVALPROEX SODIUM [Suspect]
     Indication: CONVULSION
     Dosage: 3 CAPS TWICE A DAY

REACTIONS (2)
  - INCORRECT DOSE ADMINISTERED [None]
  - PRODUCT QUALITY ISSUE [None]
